FAERS Safety Report 6249796-7 (Version None)
Quarter: 2009Q2

REPORT INFORMATION
  Report Type: 
  Country: None (occurrence: None)
  Receive Date: 20090629
  Receipt Date: 20090617
  Transmission Date: 20091009
  Serious: Yes (Other)
  Sender: FDA-Public Use
  Company Number: PHHY2009JP24419

PATIENT
  Sex: Female

DRUGS (7)
  1. AMN107 AMN+CAP [Suspect]
     Indication: CHRONIC MYELOID LEUKAEMIA
     Dosage: 400 MG DAILY
     Route: 048
     Dates: start: 20090511, end: 20090604
  2. LASIX [Concomitant]
     Dosage: 20 MG
  3. DIGOSIN [Concomitant]
     Dosage: 0.125 MG
  4. WARFARIN POTASSIUM [Concomitant]
     Dosage: 1 MG
  5. MEXITIL [Concomitant]
     Dosage: 200 MG
  6. RIZE [Concomitant]
     Dosage: 10 MG
  7. LIPOVAS ^BANYU^ [Concomitant]
     Dosage: 5 MG

REACTIONS (8)
  - ABDOMINAL PAIN UPPER [None]
  - ALANINE AMINOTRANSFERASE INCREASED [None]
  - ASPARTATE AMINOTRANSFERASE INCREASED [None]
  - ECZEMA [None]
  - LIPASE INCREASED [None]
  - PRURITUS [None]
  - THROMBOCYTOPENIA [None]
  - WHITE BLOOD CELL COUNT DECREASED [None]
